FAERS Safety Report 19168230 (Version 6)
Quarter: 2022Q3

REPORT INFORMATION
  Report Type: Report from Study
  Country: JP (occurrence: JP)
  Receive Date: 20210422
  Receipt Date: 20220826
  Transmission Date: 20221026
  Serious: Yes (Hospitalization, Other)
  Sender: FDA-Public Use
  Company Number: JP-ONO-2021JP009658

PATIENT
  Age: 77 Year
  Sex: Male
  Weight: 60 kg

DRUGS (22)
  1. ETELCALCETIDE [Suspect]
     Active Substance: ETELCALCETIDE
     Indication: Hyperparathyroidism secondary
     Dosage: 5 MG, Q56H
     Route: 010
     Dates: start: 20200629
  2. DARBEPOETIN ALFA [Concomitant]
     Active Substance: DARBEPOETIN ALFA
     Dosage: 60 MICROGRAM, QWK
     Route: 065
     Dates: start: 20190805, end: 20190826
  3. DARBEPOETIN ALFA [Concomitant]
     Active Substance: DARBEPOETIN ALFA
     Dosage: 80 MICROGRAM, QWK
     Route: 065
     Dates: start: 20190902, end: 20201026
  4. DARBEPOETIN ALFA [Concomitant]
     Active Substance: DARBEPOETIN ALFA
     Dosage: 100 MICROGRAM, QWK
     Route: 065
     Dates: start: 20201102, end: 20201123
  5. DARBEPOETIN ALFA [Concomitant]
     Active Substance: DARBEPOETIN ALFA
     Dosage: 120 MICROGRAM, QWK
     Route: 065
     Dates: start: 20201130, end: 20210426
  6. DARBEPOETIN ALFA [Concomitant]
     Active Substance: DARBEPOETIN ALFA
     Dosage: 80 MICROGRAM, QWK
     Dates: start: 20220316, end: 20220420
  7. ALFACALCIDOL [Concomitant]
     Active Substance: ALFACALCIDOL
     Indication: Hyperparathyroidism secondary
     Dosage: 0.5 MICROGRAM, QD
     Route: 048
     Dates: end: 20190405
  8. ALFACALCIDOL [Concomitant]
     Active Substance: ALFACALCIDOL
     Dosage: 1 MICROGRAM, QD
     Route: 048
     Dates: start: 20190406, end: 20190906
  9. ALFACALCIDOL [Concomitant]
     Active Substance: ALFACALCIDOL
     Dosage: 0.5 MICROGRAM, QD
     Route: 048
     Dates: start: 20190907
  10. CALCIUM CARBONATE [Concomitant]
     Active Substance: CALCIUM CARBONATE
     Dosage: 1500 MG, EVERYDAY
     Route: 065
     Dates: start: 20191228, end: 20220304
  11. IRON SUCROSE [Concomitant]
     Active Substance: IRON SUCROSE
     Dosage: 40 MILLIGRAM, QWK
     Route: 065
     Dates: start: 20190805, end: 20200127
  12. IRON SUCROSE [Concomitant]
     Active Substance: IRON SUCROSE
     Dosage: 40 MILLIGRAM, QWK
     Route: 065
     Dates: start: 20201207, end: 20210222
  13. IRON SUCROSE [Concomitant]
     Active Substance: IRON SUCROSE
     Dosage: 80 MILLIGRAM, QWK
     Route: 065
     Dates: start: 20210301, end: 20210730
  14. IRON SUCROSE [Concomitant]
     Active Substance: IRON SUCROSE
     Dosage: 40 MILLIGRAM, QWK
     Dates: start: 20210802, end: 20220228
  15. IRON SUCROSE [Concomitant]
     Active Substance: IRON SUCROSE
     Dosage: 80 MILLIGRAM, QWK
     Dates: start: 20220311, end: 20220422
  16. DAPRODUSTAT [Concomitant]
     Active Substance: DAPRODUSTAT
     Dosage: 4 MG, EVERYDAY
     Route: 048
     Dates: start: 20210501, end: 20210528
  17. DAPRODUSTAT [Concomitant]
     Active Substance: DAPRODUSTAT
     Dosage: 6 MG, EVERYDAY
     Dates: start: 20210529, end: 20210625
  18. DAPRODUSTAT [Concomitant]
     Active Substance: DAPRODUSTAT
     Dosage: 8 MG, EVERYDAY
     Dates: start: 20210626, end: 20210922
  19. DAPRODUSTAT [Concomitant]
     Active Substance: DAPRODUSTAT
     Dosage: 10 MG, EVERYDAY
     Dates: start: 20210923, end: 20211029
  20. DAPRODUSTAT [Concomitant]
     Active Substance: DAPRODUSTAT
     Dosage: 12 MG, EVERYDAY
     Dates: start: 20211030, end: 20220310
  21. DAPRODUSTAT [Concomitant]
     Active Substance: DAPRODUSTAT
     Dosage: 8 MG, EVERYDAY
     Dates: start: 20220426
  22. FERRIC CITRATE ANHYDROUS [Concomitant]
     Active Substance: FERRIC CITRATE ANHYDROUS
     Dosage: 1500 MG, EVERYDAY
     Route: 048
     Dates: start: 20220305

REACTIONS (3)
  - Spinal compression fracture [Not Recovered/Not Resolved]
  - Spinal compression fracture [Recovering/Resolving]
  - Gastrointestinal angiectasia [Recovering/Resolving]

NARRATIVE: CASE EVENT DATE: 20210301
